FAERS Safety Report 5855952-X (Version None)
Quarter: 2008Q3

REPORT INFORMATION
  Report Type: 
  Country: None (occurrence: None)
  Receive Date: 20080825
  Receipt Date: 20040907
  Transmission Date: 20090109
  Serious: Yes (Disabling, Other)
  Sender: FDA-Public Use
  Company Number: US-BAYER-200418301BWH

PATIENT
  Age: 34 Year
  Sex: Male
  Weight: 79 kg

DRUGS (2)
  1. AVELOX [Suspect]
     Indication: SINUSITIS
     Dosage: TOTAL DAILY DOSE: 400 MG  UNIT DOSE: 400 MG
     Route: 048
     Dates: start: 20040320, end: 20040331
  2. SINGULAIR [Concomitant]

REACTIONS (13)
  - ARTHRALGIA [None]
  - BLOOD CREATINE PHOSPHOKINASE INCREASED [None]
  - BURNING SENSATION [None]
  - CARPAL TUNNEL SYNDROME [None]
  - MUSCULAR WEAKNESS [None]
  - NERVE INJURY [None]
  - NEUROPATHY PERIPHERAL [None]
  - PAIN IN EXTREMITY [None]
  - PARAESTHESIA [None]
  - RASH [None]
  - TENDON PAIN [None]
  - TENDONITIS [None]
  - ULNAR NEURITIS [None]
